FAERS Safety Report 8511901-7 (Version None)
Quarter: 2012Q3

REPORT INFORMATION
  Report Type: 
  Country: None (occurrence: None)
  Receive Date: 20120716
  Receipt Date: 20120712
  Transmission Date: 20120928
  Serious: Yes (Life-Threatening, Hospitalization, Other)
  Sender: FDA-Public Use
  Company Number: SE-PFIZER INC-2012167365

PATIENT
  Age: 28 Year
  Sex: Female

DRUGS (1)
  1. CYTOTEC [Suspect]
     Indication: ABORTION INDUCED
     Dosage: 0.8 MG, SINGLE
     Route: 048
     Dates: start: 20120218, end: 20120218

REACTIONS (3)
  - OFF LABEL USE [None]
  - DUODENAL ULCER PERFORATION [None]
  - ABORTION [None]
